FAERS Safety Report 12140463 (Version 1)
Quarter: 2016Q1

REPORT INFORMATION
  Report Type: Spontaneous
  Country: US (occurrence: US)
  Receive Date: 20160303
  Receipt Date: 20160303
  Transmission Date: 20160526
  Serious: Yes (Other)
  Sender: FDA-Public Use
  Company Number: US-AMGEN-USASP2016024405

PATIENT
  Age: 62 Year
  Sex: Female
  Weight: 96.16 kg

DRUGS (48)
  1. ENBREL [Suspect]
     Active Substance: ETANERCEPT
     Indication: RHEUMATOID ARTHRITIS
     Dosage: UNK
     Route: 065
  2. METHOTREXATE [Concomitant]
     Active Substance: METHOTREXATE
     Dosage: UNK
  3. XELJANZ [Concomitant]
     Active Substance: TOFACITINIB CITRATE
     Dosage: 5 MG, BID, QUANTITY 60 (30DAYS)
     Dates: start: 20160121
  4. ALBUTEROL                          /00139501/ [Concomitant]
     Active Substance: ALBUTEROL
     Dosage: 90 MUG, ACTUATION INHALER
     Route: 048
  5. PERCOCET                           /00446701/ [Concomitant]
     Active Substance: ACETAMINOPHEN\OXYCODONE HYDROCHLORIDE\OXYCODONE TEREPHTHALATE
     Dosage: 5-325 MG, Q6H AS NEEDED
     Dates: start: 20151105
  6. MILNACIPRAN [Concomitant]
     Active Substance: MILNACIPRAN
     Dosage: 100 MG, BID
     Route: 048
     Dates: start: 20140410, end: 20160112
  7. PNEUMOCOCCAL POLYSACCHARIDE VACCINE [Concomitant]
     Active Substance: PNEUMOCOCCAL VACCINE POLYVALENT
     Dosage: 0.5 ML, UNK
     Route: 058
     Dates: start: 20120808
  8. TDAP IPV [Concomitant]
     Active Substance: DIPHTHERIA AND TETANUS TOXOIDS AND ACELLULAR PERTUSSIS ADSORBED AND INACTIVATED POLIOVIRUS VACCINE
     Dosage: 0.5 ML, UNK
     Route: 030
     Dates: start: 20150712
  9. PLAQUENIL [Concomitant]
     Active Substance: HYDROXYCHLOROQUINE SULFATE
     Dosage: 200 MG, QD
     Route: 048
  10. PLAQUENIL [Concomitant]
     Active Substance: HYDROXYCHLOROQUINE SULFATE
     Dosage: TWO TABLETS DAILY
     Route: 048
     Dates: start: 20160112
  11. PLAQUENIL [Concomitant]
     Active Substance: HYDROXYCHLOROQUINE SULFATE
     Dosage: TWO TABLETS DAILY
     Route: 048
     Dates: start: 20160121
  12. CALCIUM [Concomitant]
     Active Substance: CALCIUM
     Dosage: UNK
  13. SAVELLA [Concomitant]
     Active Substance: MILNACIPRAN HYDROCHLORIDE
     Indication: FIBROMYALGIA
     Dosage: UNK
  14. PRADAXA [Concomitant]
     Active Substance: DABIGATRAN ETEXILATE MESYLATE
     Dosage: 150 MG, QD
     Route: 048
  15. SINGULAIR [Concomitant]
     Active Substance: MONTELUKAST SODIUM
     Dosage: 10 MG, QD
     Route: 048
  16. NASACORT [Concomitant]
     Active Substance: TRIAMCINOLONE ACETONIDE
     Dosage: 55 MUG, QD
     Route: 045
     Dates: start: 20141113
  17. TOFACITINIB [Concomitant]
     Active Substance: TOFACITINIB
     Dosage: ONE TABLET TWO TIMES DAILY
     Route: 048
     Dates: start: 20160121
  18. DULOXETINE. [Concomitant]
     Active Substance: DULOXETINE
     Dosage: UNK
  19. PLAQUENIL [Concomitant]
     Active Substance: HYDROXYCHLOROQUINE SULFATE
     Dosage: TWO TABLETS DAILY WITH FOOD
     Route: 048
     Dates: start: 20151013, end: 20160121
  20. HYDROXYCHLOROQUINE [Concomitant]
     Active Substance: HYDROXYCHLOROQUINE
     Indication: FIBROMYALGIA
     Dosage: 400 MG, UNK
  21. VITAMIN D3 [Concomitant]
     Active Substance: CHOLECALCIFEROL
     Dosage: 1000 IU, QD
     Route: 048
  22. VOLTAREN [Concomitant]
     Active Substance: DICLOFENAC SODIUM
     Indication: PAIN
     Dosage: 2 G AS NEEDED
     Route: 061
     Dates: start: 20141117
  23. ALENDRONATE [Concomitant]
     Active Substance: ALENDRONATE SODIUM
     Dosage: UNK
  24. HUMIRA [Concomitant]
     Active Substance: ADALIMUMAB
     Dosage: UNK
  25. SULFASALAZINE. [Concomitant]
     Active Substance: SULFASALAZINE
     Dosage: UNK
  26. CODEINE [Concomitant]
     Active Substance: CODEINE
     Dosage: UNK
  27. CALCIUM CARBONATE. [Concomitant]
     Active Substance: CALCIUM CARBONATE
     Dosage: ONE TABLET TWO TIMES DAILY
     Route: 048
  28. VITAMIN B12 [Concomitant]
     Active Substance: CYANOCOBALAMIN
     Dosage: 1000 MUG, QD
     Route: 048
  29. LISINOPRIL. [Concomitant]
     Active Substance: LISINOPRIL
     Dosage: 200 MG, QD
     Route: 048
  30. CRESTOR [Concomitant]
     Active Substance: ROSUVASTATIN CALCIUM
     Dosage: 20 MG, QD WITH DINNER
     Route: 048
  31. AMBIEN [Concomitant]
     Active Substance: ZOLPIDEM TARTRATE
     Indication: SLEEP DISORDER
     Dosage: 5 MG, AS NEEDED
     Route: 048
  32. NEURONTIN [Concomitant]
     Active Substance: GABAPENTIN
     Dosage: 600 MG, FOUR TIMES DAILY
     Route: 048
  33. PROTONIX                           /00661201/ [Concomitant]
     Active Substance: OMEPRAZOLE
     Dosage: 40 MG, QD BEFORE FOOD
     Route: 048
  34. TOFACITINIB [Concomitant]
     Active Substance: TOFACITINIB
     Dosage: 5 MG, QD
     Route: 048
     Dates: start: 20160112
  35. ALPRAZOLAM. [Concomitant]
     Active Substance: ALPRAZOLAM
     Dosage: 5 MG, BID AS NEEDED
     Route: 048
     Dates: start: 20140724
  36. ASPIRINE [Concomitant]
     Active Substance: ASPIRIN
     Dosage: 81 MG, QD
     Route: 048
  37. TEMOVATE [Concomitant]
     Active Substance: CLOBETASOL PROPIONATE
     Indication: PAIN
     Dosage: UNK UNK, BID
     Route: 061
  38. DENAVIR [Concomitant]
     Active Substance: PENCICLOVIR
     Dosage: 1 %, QD
     Route: 061
     Dates: start: 20141113
  39. REMICADE [Concomitant]
     Active Substance: INFLIXIMAB
     Dosage: UNK
  40. VITAMIN D [Concomitant]
     Active Substance: CHOLECALCIFEROL
     Dosage: UNK
  41. LASIX [Concomitant]
     Active Substance: FUROSEMIDE
     Dosage: 40 MG, QD
     Route: 048
  42. ZOLOFT [Concomitant]
     Active Substance: SERTRALINE HYDROCHLORIDE
     Dosage: 50 MG, TWICE DAILY
     Route: 048
  43. DELTASONE                          /00016001/ [Concomitant]
     Dosage: 10 MG, QD
     Route: 048
     Dates: start: 20151013
  44. RITUXAN [Concomitant]
     Active Substance: RITUXIMAB
     Dosage: UNK
     Dates: start: 20120921, end: 20140213
  45. WARFARIN [Concomitant]
     Active Substance: WARFARIN
     Dosage: UNK
  46. DULERA [Concomitant]
     Active Substance: FORMOTEROL FUMARATE DIHYDRATE\MOMETASONE FUROATE
     Dosage: 200-5 MCG, TWO PUFFS INTO LUNGS BID
     Route: 045
  47. VALTREX [Concomitant]
     Active Substance: VALACYCLOVIR HYDROCHLORIDE
     Dosage: 500 MG, QD
     Route: 048
  48. SULFONAMIDE [Concomitant]
     Active Substance: UNSPECIFIED INGREDIENT
     Dosage: UNK

REACTIONS (67)
  - Hip arthroplasty [Unknown]
  - Pulmonary embolism [Unknown]
  - Deep vein thrombosis [Unknown]
  - Bursitis [Unknown]
  - Haematuria [Unknown]
  - Hypertension [Unknown]
  - Gastrooesophageal reflux disease [Unknown]
  - Brain injury [Recovered/Resolved]
  - Carotid artery stenosis [Unknown]
  - Rheumatic fever [Unknown]
  - Cerebrovascular accident [Unknown]
  - Musculoskeletal pain [Recovering/Resolving]
  - Sacroiliitis [Unknown]
  - Platelet count decreased [Unknown]
  - Drug ineffective [Unknown]
  - Fatigue [Unknown]
  - Sleep apnoea syndrome [Unknown]
  - Humerus fracture [Unknown]
  - Nausea [Unknown]
  - Neck surgery [Unknown]
  - Hyperlipidaemia [Unknown]
  - Spinal operation [Unknown]
  - Haematochezia [Unknown]
  - Musculoskeletal stiffness [Recovering/Resolving]
  - Raynaud^s phenomenon [Unknown]
  - Osteoarthritis [Unknown]
  - Mitral valve prolapse [Unknown]
  - Lumbar spinal stenosis [Unknown]
  - Blood urine present [Recovered/Resolved]
  - Hepatitis [Unknown]
  - Thrombocytopenia [Unknown]
  - Psoriasis [Unknown]
  - Cholecystectomy [Unknown]
  - Shoulder arthroplasty [Unknown]
  - Gastrointestinal haemorrhage [Unknown]
  - Arthralgia [Unknown]
  - Intervertebral disc degeneration [Unknown]
  - Hysterectomy [Unknown]
  - Tendonitis [Unknown]
  - Mood altered [Recovered/Resolved]
  - Capillary fragility increased [Unknown]
  - Asthma [Unknown]
  - Anxiety [Unknown]
  - Peptic ulcer [Unknown]
  - Emphysema [Unknown]
  - Peroneal nerve palsy [Unknown]
  - Rotator cuff syndrome [Unknown]
  - Depression [Unknown]
  - Animal scratch [Unknown]
  - Chronic obstructive pulmonary disease [Unknown]
  - Periarthritis [Unknown]
  - Chest pain [Unknown]
  - Barrett^s oesophagus [Unknown]
  - Pain in extremity [Recovering/Resolving]
  - Oesophagitis [Unknown]
  - Lividity [Unknown]
  - Upper limb fracture [Recovered/Resolved]
  - Spinal column stenosis [Unknown]
  - Antiphospholipid syndrome [Unknown]
  - Rash [Unknown]
  - Scar [Unknown]
  - Peripheral swelling [Unknown]
  - Anaemia vitamin B12 deficiency [Unknown]
  - Muscle spasms [Unknown]
  - Synovitis [Unknown]
  - Coagulopathy [Recovered/Resolved]
  - Foot fracture [Unknown]

NARRATIVE: CASE EVENT DATE: 20111207
